FAERS Safety Report 7435525-8 (Version None)
Quarter: 2011Q2

REPORT INFORMATION
  Report Type: 
  Country: None (occurrence: None)
  Receive Date: 20110425
  Receipt Date: 20110418
  Transmission Date: 20111010
  Serious: Yes (Hospitalization, Other)
  Sender: FDA-Public Use
  Company Number: US-BRISTOL-MYERS SQUIBB COMPANY-15680093

PATIENT
  Sex: Male

DRUGS (1)
  1. HYDROXYUREA [Suspect]
     Route: 048

REACTIONS (4)
  - DYSPNOEA [None]
  - PYREXIA [None]
  - RENAL DISORDER [None]
  - TREMOR [None]
